FAERS Safety Report 6867267-1 (Version None)
Quarter: 2010Q3

REPORT INFORMATION
  Report Type: 
  Country: None (occurrence: None)
  Receive Date: 20100722
  Receipt Date: 20100709
  Transmission Date: 20110219
  Serious: Yes (Hospitalization)
  Sender: FDA-Public Use
  Company Number: IT-ELI_LILLY_AND_COMPANY-IT201006006732

PATIENT
  Sex: Female

DRUGS (4)
  1. CYMBALTA [Suspect]
     Indication: DEPRESSION
     Dosage: 60 MG, UNK
     Route: 048
  2. TOPAMAX [Concomitant]
     Indication: DEPRESSION
     Dosage: 15 MG, UNK
  3. DEPAKENE [Concomitant]
     Indication: DEPRESSION
     Dosage: 500 MG, UNK
  4. LEXOTAN [Concomitant]
     Indication: DEPRESSION
     Dosage: 2.5 MG/ML, UNK

REACTIONS (4)
  - ALCOHOL ABUSE [None]
  - CONFUSIONAL STATE [None]
  - DRUG ABUSE [None]
  - SOMNOLENCE [None]
